FAERS Safety Report 23586376 (Version 1)
Quarter: 2024Q1

REPORT INFORMATION
  Report Type: Spontaneous
  Country: US (occurrence: US)
  Receive Date: 20240301
  Receipt Date: 20240301
  Transmission Date: 20240410
  Serious: No
  Sender: FDA-Public Use
  Company Number: US-VERTEX PHARMACEUTICALS-2024-003255

PATIENT
  Sex: Female
  Weight: 59 kg

DRUGS (3)
  1. TRIKAFTA [Suspect]
     Active Substance: ELEXACAFTOR\IVACAFTOR\TEZACAFTOR
     Indication: Cystic fibrosis
     Dosage: UNK FREQ
     Route: 048
     Dates: start: 20210617, end: 20230711
  2. TRIKAFTA [Suspect]
     Active Substance: ELEXACAFTOR\IVACAFTOR\TEZACAFTOR
     Dosage: DOSE DECREASED, 2 ORANGE TAB,AM.
     Route: 048
     Dates: start: 20230728, end: 20230912
  3. TRIKAFTA [Suspect]
     Active Substance: ELEXACAFTOR\IVACAFTOR\TEZACAFTOR
     Dosage: RESTARTED AT 1 ORANGE TAB, DAILY (NO PM DOSE)
     Route: 048
     Dates: start: 20231128

REACTIONS (1)
  - Liver function test increased [Unknown]
